FAERS Safety Report 23144450 (Version 1)
Quarter: 2023Q4

REPORT INFORMATION
  Report Type: Spontaneous
  Country: US (occurrence: None)
  Receive Date: 20231103
  Receipt Date: 20231103
  Transmission Date: 20240110
  Serious: Yes (Disabling)
  Sender: FDA-Public Use
  Company Number: None

PATIENT
  Age: 32 Year
  Sex: Female
  Weight: 64.35 kg

DRUGS (13)
  1. CIPRO [Suspect]
     Active Substance: CIPROFLOXACIN HYDROCHLORIDE
     Indication: Urinary tract infection
     Dosage: FREQUENCY : TWICE A DAY;?
     Route: 048
     Dates: start: 20230620, end: 20230626
  2. CIPRO [Suspect]
     Active Substance: CIPROFLOXACIN HYDROCHLORIDE
     Indication: Kidney infection
  3. Acyclovir as needed [Concomitant]
  4. MAGNESIUM [Concomitant]
  5. CoQ10 [Concomitant]
  6. COLLAGEN [Concomitant]
  7. Uqora [Concomitant]
  8. UTI supplements [Concomitant]
  9. Apple Cider Vinegar Pills [Concomitant]
  10. D-MANNOSE [Concomitant]
  11. TAURINE [Concomitant]
  12. VITAMIN E [Concomitant]
     Active Substance: .ALPHA.-TOCOPHEROL
  13. VITAMIN D [Concomitant]
     Active Substance: VITAMIN D NOS

REACTIONS (11)
  - Tendon pain [None]
  - Tendon discomfort [None]
  - Muscle twitching [None]
  - Therapy cessation [None]
  - Exercise tolerance decreased [None]
  - Neuropathy peripheral [None]
  - Arthralgia [None]
  - Hypoacusis [None]
  - Tinnitus [None]
  - Neuralgia [None]
  - Pain [None]

NARRATIVE: CASE EVENT DATE: 20230620
